FAERS Safety Report 8811437 (Version 1)
Quarter: 2012Q4

REPORT INFORMATION
  Report Type: 
  Country: BR (occurrence: BR)
  Receive Date: 20120927
  Receipt Date: 20120927
  Transmission Date: 20130627
  Serious: Yes (Other)
  Sender: FDA-Public Use
  Company Number: BR-BRISTOL-MYERS SQUIBB COMPANY-16978819

PATIENT
  Age: 75 Year
  Sex: Male
  Weight: 70 kg

DRUGS (2)
  1. HYDREA CAPS 500 MG [Suspect]
     Indication: BONE NEOPLASM MALIGNANT
     Route: 048
  2. SIMVASTATIN [Concomitant]

REACTIONS (2)
  - Infarction [Unknown]
  - Haemoglobin decreased [Recovering/Resolving]
